FAERS Safety Report 17568407 (Version 1)
Quarter: 2020Q1

REPORT INFORMATION
  Report Type: Spontaneous
  Country: US (occurrence: US)
  Receive Date: 20200320
  Receipt Date: 20200320
  Transmission Date: 20200409
  Serious: No
  Sender: FDA-Public Use
  Company Number: US-009507513-2003USA006946

PATIENT
  Age: 44 Year
  Sex: Female

DRUGS (12)
  1. PREGNYL [Concomitant]
     Active Substance: CHORIOGONADOTROPIN ALFA
  2. GANIRELIX ACETATE INJECTION [Suspect]
     Active Substance: GANIRELIX ACETATE
     Indication: INFERTILITY FEMALE
     Dosage: 250 MCG, DAILY AS DIRECTED
     Route: 058
     Dates: start: 20190319
  3. DOXYCYCLINE. [Concomitant]
     Active Substance: DOXYCYCLINE
  4. ASPIRIN. [Concomitant]
     Active Substance: ASPIRIN
  5. FOLLISTIM AQ [Suspect]
     Active Substance: FOLLITROPIN
     Indication: INFERTILITY FEMALE
     Dosage: 600 IU, DAILY
     Route: 058
     Dates: start: 20190322
  6. CLOMIPHENE CITRATE. [Concomitant]
     Active Substance: CLOMIPHENE CITRATE
  7. PROGESTERONE. [Concomitant]
     Active Substance: PROGESTERONE
  8. OVIDREL [Concomitant]
     Active Substance: CHORIOGONADOTROPIN ALFA
  9. FOLLISTIM AQ [Suspect]
     Active Substance: FOLLITROPIN
  10. ENDOMETRIN [Concomitant]
     Active Substance: PROGESTERONE
  11. LEUPROLIDE [Concomitant]
     Active Substance: LEUPROLIDE
  12. PREGNYL [Concomitant]
     Active Substance: CHORIOGONADOTROPIN ALFA

REACTIONS (3)
  - Feeling hot [Unknown]
  - Myalgia [Unknown]
  - Vaginal discharge [Unknown]

NARRATIVE: CASE EVENT DATE: 202002
